FAERS Safety Report 11708832 (Version 1)
Quarter: 2015Q4

REPORT INFORMATION
  Report Type: Spontaneous
  Country: US (occurrence: US)
  Receive Date: 20151104
  Receipt Date: 20151104
  Transmission Date: 20160304
  Serious: No
  Sender: FDA-Public Use
  Company Number: US-ELI_LILLY_AND_COMPANY-US201101007103

PATIENT
  Age: 54 Year
  Sex: Female

DRUGS (3)
  1. FORTEO [Suspect]
     Active Substance: TERIPARATIDE
     Dosage: 20 UG, QD
     Dates: start: 201104
  2. FORTEO [Suspect]
     Active Substance: TERIPARATIDE
     Dosage: 20 UG, DAILY (1/D)
     Dates: end: 20110225
  3. FORTEO [Suspect]
     Active Substance: TERIPARATIDE
     Indication: OSTEOPOROSIS
     Dosage: 20 UG, DAILY (1/D)
     Dates: start: 201010

REACTIONS (12)
  - Chest discomfort [Unknown]
  - Dizziness [Unknown]
  - Gait disturbance [Recovered/Resolved]
  - Palpitations [Recovered/Resolved]
  - Arrhythmia [Unknown]
  - Rhinorrhoea [Unknown]
  - Musculoskeletal pain [Unknown]
  - Contusion [Unknown]
  - Fall [Unknown]
  - Post-traumatic pain [Recovering/Resolving]
  - Upper-airway cough syndrome [Unknown]
  - Joint injury [Unknown]

NARRATIVE: CASE EVENT DATE: 201011
